FAERS Safety Report 9641630 (Version 2)
Quarter: 2013Q4

REPORT INFORMATION
  Report Type: Report from Study
  Country: NL (occurrence: NL)
  Receive Date: 20131023
  Receipt Date: 20131028
  Transmission Date: 20140711
  Serious: Yes (Hospitalization)
  Sender: FDA-Public Use
  Company Number: NL-GLAXOSMITHKLINE-B0933725A

PATIENT
  Age: 64 Year
  Sex: Male
  Weight: 94 kg

DRUGS (2)
  1. DABRAFENIB [Suspect]
     Indication: METASTATIC MALIGNANT MELANOMA
     Dosage: 150MG TWICE PER DAY
     Route: 048
     Dates: start: 20130927
  2. TRAMETINIB [Suspect]
     Indication: METASTATIC MALIGNANT MELANOMA
     Dosage: 2MG PER DAY
     Route: 048
     Dates: start: 20130927

REACTIONS (1)
  - Pyrexia [Recovered/Resolved]
